FAERS Safety Report 6398902-2 (Version None)
Quarter: 2009Q4

REPORT INFORMATION
  Report Type: 
  Country: None (occurrence: None)
  Receive Date: 20091013
  Receipt Date: 20091005
  Transmission Date: 20100525
  Serious: Yes (Life-Threatening)
  Sender: FDA-Public Use
  Company Number: JP-GENENTECH-290054

PATIENT
  Age: 72 Year
  Sex: Female

DRUGS (6)
  1. AVASTIN [Suspect]
     Indication: COLON CANCER RECURRENT
     Dosage: 5 MG/KG, 1/MONTH
     Route: 041
     Dates: start: 20081224, end: 20090729
  2. ISOVORIN [Suspect]
     Indication: COLON CANCER RECURRENT
     Dosage: 275 MG, UNK
     Route: 041
     Dates: start: 20070919, end: 20090729
  3. ELPLAT [Suspect]
     Indication: COLON CANCER RECURRENT
     Dosage: 120 MG, UNK
     Route: 041
     Dates: start: 20090624, end: 20090729
  4. LORNOXICAM [Concomitant]
     Indication: DRUG USE FOR UNKNOWN INDICATION
     Dosage: UNK
  5. MUCOSTA [Concomitant]
     Indication: DRUG USE FOR UNKNOWN INDICATION
     Dosage: UNK
  6. MS CONTIN [Concomitant]
     Indication: DRUG USE FOR UNKNOWN INDICATION
     Dosage: UNK

REACTIONS (2)
  - CARDIO-RESPIRATORY ARREST [None]
  - SHOCK [None]
